FAERS Safety Report 23594677 (Version 1)
Quarter: 2024Q1

REPORT INFORMATION
  Report Type: Spontaneous
  Country: US (occurrence: US)
  Receive Date: 20240305
  Receipt Date: 20240305
  Transmission Date: 20240409
  Serious: No
  Sender: FDA-Public Use
  Company Number: US-ALVOGEN-2024092912

PATIENT

DRUGS (1)
  1. BUPRENORPHINE [Suspect]
     Active Substance: BUPRENORPHINE
     Indication: Product used for unknown indication
     Dosage: USED ONE, THEN CHANGED IT ON THE SEVENTH DAY PUT NEW ONE ON?EXPIRATION DATE: UU-JUNE-2024
     Route: 062

REACTIONS (2)
  - Device malfunction [Unknown]
  - Device adhesion issue [Unknown]
